FAERS Safety Report 5691094-4 (Version None)
Quarter: 2008Q2

REPORT INFORMATION
  Report Type: 
  Country: None (occurrence: None)
  Receive Date: 20080401
  Receipt Date: 20080325
  Transmission Date: 20081010
  Serious: Yes (Other)
  Sender: FDA-Public Use
  Company Number: JP-BOEHRINGER INGELHEIM GMBH, GERMANY-2008-BP-04691NB

PATIENT
  Sex: Female
  Weight: 50 kg

DRUGS (1)
  1. SPIRIVA [Suspect]
     Indication: EMPHYSEMA
     Route: 055
     Dates: start: 20070308

REACTIONS (5)
  - GALLBLADDER CANCER RECURRENT [None]
  - MALIGNANT ASCITES [None]
  - PYLORIC STENOSIS [None]
  - REFLUX OESOPHAGITIS [None]
  - VOMITING [None]
